FAERS Safety Report 12562984 (Version 1)
Quarter: 2016Q3

REPORT INFORMATION
  Report Type: Spontaneous
  Country: US (occurrence: US)
  Receive Date: 20160715
  Receipt Date: 20160715
  Transmission Date: 20161109
  Serious: Yes (Hospitalization, Other)
  Sender: FDA-Public Use
  Company Number: US-GILEAD-2016-0223582

PATIENT
  Age: 49 Year
  Sex: Male
  Weight: 94.33 kg

DRUGS (8)
  1. LYRICA [Concomitant]
     Active Substance: PREGABALIN
  2. TRUVADA [Suspect]
     Active Substance: EMTRICITABINE\TENOFOVIR DISOPROXIL FUMARATE
     Indication: HIV INFECTION
     Dosage: 1 DF, QD
     Route: 065
     Dates: start: 20100223
  3. COUMADIN [Concomitant]
     Active Substance: WARFARIN SODIUM
  4. VALTREX [Concomitant]
     Active Substance: VALACYCLOVIR HYDROCHLORIDE
  5. LANTUS [Concomitant]
     Active Substance: INSULIN GLARGINE
  6. NEURONTIN [Concomitant]
     Active Substance: GABAPENTIN
  7. FAMVIR [Concomitant]
     Active Substance: FAMCICLOVIR
  8. ISENTRESS [Concomitant]
     Active Substance: RALTEGRAVIR POTASSIUM
     Dosage: 400 MG, BID
     Dates: start: 20100223

REACTIONS (3)
  - Herpes zoster [Unknown]
  - Chest pain [Recovered/Resolved]
  - Atrial fibrillation [Recovered/Resolved]

NARRATIVE: CASE EVENT DATE: 20101202
